FAERS Safety Report 4369166-6 (Version None)
Quarter: 2004Q2

REPORT INFORMATION
  Report Type: 
  Country: None (occurrence: None)
  Receive Date: 20040527
  Receipt Date: 20040503
  Transmission Date: 20050107
  Serious: Yes (Disabling)
  Sender: FDA-Public Use
  Company Number: USA040363068

PATIENT
  Age: 22 Year
  Sex: Female
  Weight: 112 kg

DRUGS (2)
  1. HUMALOG [Suspect]
     Dosage: 45 U/3 DAY
     Dates: start: 19960212
  2. LANTUS [Concomitant]

REACTIONS (5)
  - DYSSTASIA [None]
  - IMPAIRED WORK ABILITY [None]
  - KIDNEY INFECTION [None]
  - NECROBIOSIS LIPOIDICA DIABETICORUM [None]
  - SKIN ULCER [None]
